FAERS Safety Report 24601813 (Version 1)
Quarter: 2024Q4

REPORT INFORMATION
  Report Type: Spontaneous
  Country: US (occurrence: US)
  Receive Date: 20241111
  Receipt Date: 20241111
  Transmission Date: 20250115
  Serious: Yes (Other)
  Sender: SPROUT PHARMACEUTICALS, INC.
  Company Number: US-Sprout Pharmaceuticals, Inc.-2024SP000347

PATIENT
  Age: 50 Year
  Sex: Female

DRUGS (1)
  1. ADDYI [Suspect]
     Active Substance: FLIBANSERIN
     Indication: Product used for unknown indication
     Dosage: RX # 164066
     Route: 048
     Dates: start: 202306

REACTIONS (2)
  - Systemic lupus erythematosus [Unknown]
  - Eczema [Unknown]

NARRATIVE: CASE EVENT DATE: 20240901
